FAERS Safety Report 4757731-3 (Version None)
Quarter: 2005Q3

REPORT INFORMATION
  Report Type: 
  Country: None (occurrence: None)
  Receive Date: 20050830
  Receipt Date: 20050816
  Transmission Date: 20060218
  Serious: Yes (Hospitalization, Other)
  Sender: FDA-Public Use
  Company Number: FABR-11106

PATIENT
  Age: 61 Year
  Sex: Female
  Weight: 75 kg

DRUGS (3)
  1. FABRAZYME [Suspect]
     Indication: FABRY'S DISEASE
     Dosage: 70 MG Q2WKS IV
     Route: 042
     Dates: start: 20031107
  2. BISOPROLOL [Concomitant]
  3. MARCUMAR [Concomitant]

REACTIONS (10)
  - ATRIAL FIBRILLATION [None]
  - BLOOD THYROID STIMULATING HORMONE INCREASED [None]
  - BUNDLE BRANCH BLOCK RIGHT [None]
  - DIZZINESS [None]
  - ELECTROCARDIOGRAM ST SEGMENT DEPRESSION [None]
  - HYPOTHYROIDISM [None]
  - MITRAL VALVE INCOMPETENCE [None]
  - TACHYARRHYTHMIA [None]
  - VENTRICULAR HYPERTROPHY [None]
  - WOLFF-PARKINSON-WHITE SYNDROME [None]
